FAERS Safety Report 11314357 (Version 2)
Quarter: 2015Q3

REPORT INFORMATION
  Report Type: Spontaneous
  Country: NL (occurrence: NL)
  Receive Date: 20150727
  Receipt Date: 20150826
  Transmission Date: 20151125
  Serious: Yes (Hospitalization, Other)
  Sender: FDA-Public Use
  Company Number: NL-PFIZER INC-2015246244

PATIENT
  Age: 75 Year
  Sex: Female

DRUGS (12)
  1. SOTALOL. [Concomitant]
     Active Substance: SOTALOL
     Dosage: 40 MG, 2X/DAY
     Route: 048
  2. SOMAVERT [Suspect]
     Active Substance: PEGVISOMANT
     Dosage: 80 MG, 1X/DAY
     Route: 058
     Dates: start: 20081003, end: 20120618
  3. SOMAVERT [Suspect]
     Active Substance: PEGVISOMANT
     Dosage: 100 MG, WEEKLY
     Route: 058
     Dates: start: 20120720, end: 20130428
  4. SOMAVERT [Suspect]
     Active Substance: PEGVISOMANT
     Dosage: 120 MG, WEEKLY
     Route: 058
     Dates: start: 20130429
  5. ENALAPRIL [Concomitant]
     Active Substance: ENALAPRIL
     Dosage: 20 MG, 2X/DAY
     Route: 048
  6. OMEPRAZOL [Concomitant]
     Active Substance: OMEPRAZOLE
     Dosage: 20 MG, 1X/DAY
     Route: 048
  7. HYDROCHLOROTHIAZIDE. [Concomitant]
     Active Substance: HYDROCHLOROTHIAZIDE
     Dosage: 12.5 MG, 1X/DAY
     Route: 048
  8. METFORMIN [Concomitant]
     Active Substance: METFORMIN HYDROCHLORIDE
     Dosage: 500 MG, 1X/DAY
     Route: 048
  9. SOMAVERT [Suspect]
     Active Substance: PEGVISOMANT
     Dosage: 40 MG, 1X/DAY
     Route: 058
     Dates: start: 20080312, end: 20081002
  10. NIFEDIPINE. [Concomitant]
     Active Substance: NIFEDIPINE
     Dosage: 60 MG, 2X/DAY
     Route: 048
  11. CARBASALATE CALCIUM [Concomitant]
     Active Substance: CARBASALATE
     Dosage: 100 MG, 1X/DAY
     Route: 048
  12. SOMAVERT [Suspect]
     Active Substance: PEGVISOMANT
     Indication: ACROMEGALY
     Dosage: 10 MG, 1X/DAY
     Route: 058
     Dates: start: 20060125, end: 20080311

REACTIONS (3)
  - Hip fracture [Not Recovered/Not Resolved]
  - Off label use [Not Recovered/Not Resolved]
  - Fall [Not Recovered/Not Resolved]

NARRATIVE: CASE EVENT DATE: 20080312
